FAERS Safety Report 5340641-0 (Version None)
Quarter: 2007Q2

REPORT INFORMATION
  Report Type: 
  Country: None (occurrence: None)
  Receive Date: 20070531
  Receipt Date: 20070521
  Transmission Date: 20071010
  Serious: Yes (Hospitalization)
  Sender: FDA-Public Use
  Company Number: JP-PFIZER INC-2007042066

PATIENT
  Age: 51 Year
  Sex: Female

DRUGS (1)
  1. AZULFIDINE EN-TABS [Suspect]
     Indication: EXOSTOSIS
     Route: 048

REACTIONS (8)
  - ARTHRALGIA [None]
  - CHILLS [None]
  - DYSPNOEA [None]
  - HEADACHE [None]
  - HEART RATE INCREASED [None]
  - LIVER DISORDER [None]
  - PYREXIA [None]
  - VOMITING [None]
